FAERS Safety Report 23042009 (Version 2)
Quarter: 2024Q2

REPORT INFORMATION
  Report Type: Spontaneous
  Country: CA (occurrence: CA)
  Receive Date: 20231008
  Receipt Date: 20240422
  Transmission Date: 20240717
  Serious: Yes (Other)
  Sender: FDA-Public Use
  Company Number: CA-SANDOZ-SDZ2023CA038375

PATIENT
  Sex: Female

DRUGS (1)
  1. HYRIMOZ [Suspect]
     Active Substance: ADALIMUMAB-ADAZ
     Indication: Product used for unknown indication
     Dosage: SOLUTION  THERAPY DURATION: 82.0 DAYS
     Route: 058
     Dates: start: 20230713, end: 20231002

REACTIONS (2)
  - Psoriatic arthropathy [Unknown]
  - Drug ineffective [Unknown]
